FAERS Safety Report 7830641-0 (Version None)
Quarter: 2011Q4

REPORT INFORMATION
  Report Type: 
  Country: None (occurrence: None)
  Receive Date: 20111021
  Receipt Date: 20111015
  Transmission Date: 20120403
  Serious: Yes (Other)
  Sender: FDA-Public Use
  Company Number: US-ABBOTT-11P-163-0866331-00

PATIENT
  Sex: Male

DRUGS (6)
  1. MENS ONE A DAY MULTIVITAMIN [Concomitant]
     Indication: PRODUCT USED FOR UNKNOWN INDICATION
     Dosage: DAILY
  2. PROZAC [Concomitant]
     Indication: DEPRESSION
  3. MERCAPTOPURINE [Concomitant]
     Indication: CROHN'S DISEASE
  4. CELEBREX [Concomitant]
     Indication: SPINAL OSTEOARTHRITIS
  5. HUMIRA [Suspect]
     Indication: CROHN'S DISEASE
     Dates: start: 20110713
  6. BUSPIRONE HCL [Concomitant]
     Indication: DEPRESSION

REACTIONS (1)
  - ROTATOR CUFF SYNDROME [None]
